FAERS Safety Report 5054820-3 (Version None)
Quarter: 2006Q2

REPORT INFORMATION
  Report Type: 
  Country: None (occurrence: None)
  Receive Date: 20060614
  Receipt Date: 20060125
  Transmission Date: 20061013
  Serious: No
  Sender: FDA-Public Use
  Company Number: US200601004473

PATIENT
  Age: 70 Year
  Sex: Male

DRUGS (8)
  1. CIALIS [Suspect]
     Indication: ERECTILE DYSFUNCTION
     Dosage: 20 MG
     Dates: start: 20051001
  2. HUMALOG [Concomitant]
  3. HUMALOG MIX 25L / 75NPL PEN (HUMALOG MIX 25L / 75 NPL PEN) [Concomitant]
  4. PRINIVIL [Concomitant]
  5. BUMEX [Concomitant]
  6. ASPIRIN [Concomitant]
  7. DOXERCALCIFEROL (DOXERCALCIFEROL) [Concomitant]
  8. ADVAIR DISKUS 100/50 [Concomitant]

REACTIONS (1)
  - DRUG INEFFECTIVE [None]
